FAERS Safety Report 20412094 (Version 2)
Quarter: 2022Q1

REPORT INFORMATION
  Report Type: Report from Study
  Country: US (occurrence: US)
  Receive Date: 20220201
  Receipt Date: 20220222
  Transmission Date: 20220423
  Serious: No
  Sender: FDA-Public Use
  Company Number: US-CELGENE-USA-20220107060

PATIENT
  Sex: Male
  Weight: 113.00 kg

DRUGS (3)
  1. REVLIMID [Suspect]
     Active Substance: LENALIDOMIDE
     Indication: Plasma cell myeloma
     Dosage: 25 MILLIGRAM
     Route: 048
     Dates: start: 20211223
  2. REVLIMID [Suspect]
     Active Substance: LENALIDOMIDE
     Dosage: 25 MILLIGRAM
     Route: 048
     Dates: start: 20210123
  3. ZYLOPRIM [Suspect]
     Active Substance: ALLOPURINOL
     Indication: Plasma cell myeloma
     Route: 065

REACTIONS (3)
  - Swelling [Unknown]
  - Hypoaesthesia [Unknown]
  - Paraesthesia [Unknown]
